FAERS Safety Report 25751629 (Version 2)
Quarter: 2025Q3

REPORT INFORMATION
  Report Type: Spontaneous
  Country: US (occurrence: US)
  Receive Date: 20250902
  Receipt Date: 20250905
  Transmission Date: 20251020
  Serious: Yes (Hospitalization, Other)
  Sender: PFIZER
  Company Number: US-MLMSERVICE-20250818-PI616650-00329-1

PATIENT
  Age: 35 Year
  Sex: Male

DRUGS (7)
  1. VANCOMYCIN HYDROCHLORIDE [Suspect]
     Active Substance: VANCOMYCIN HYDROCHLORIDE
     Indication: Evidence based treatment
     Route: 042
     Dates: start: 20241121, end: 20241130
  2. CEFTRIAXONE [Concomitant]
     Active Substance: CEFTRIAXONE
     Indication: Antibiotic therapy
     Route: 042
     Dates: start: 20241127, end: 20241130
  3. MICAFUNGIN [Concomitant]
     Active Substance: MICAFUNGIN SODIUM
     Indication: Evidence based treatment
     Route: 042
     Dates: start: 20241122
  4. IBUPROFEN [Concomitant]
     Active Substance: IBUPROFEN
  5. NAPROXEN [Concomitant]
     Active Substance: NAPROXEN
  6. ACETAMINOPHEN [Concomitant]
     Active Substance: ACETAMINOPHEN
  7. DICLOFENAC [Concomitant]
     Active Substance: DICLOFENAC
     Route: 061

REACTIONS (1)
  - Vancomycin infusion reaction [Not Recovered/Not Resolved]

NARRATIVE: CASE EVENT DATE: 20241130
